FAERS Safety Report 5193275-5 (Version None)
Quarter: 2006Q4

REPORT INFORMATION
  Report Type: 
  Country: None (occurrence: None)
  Receive Date: 20061228
  Receipt Date: 20060816
  Transmission Date: 20070319
  Serious: No
  Sender: FDA-Public Use
  Company Number: AFH20248

PATIENT
  Age: 52 Year
  Sex: Male
  Weight: 120.5 kg

DRUGS (2)
  1. AVODART [Suspect]
     Indication: BENIGN PROSTATIC HYPERPLASIA
     Dosage: .5MG PER DAY
     Route: 048
  2. CRESTOR [Concomitant]

REACTIONS (1)
  - BACK PAIN [None]
